FAERS Safety Report 17495947 (Version 2)
Quarter: 2021Q2

REPORT INFORMATION
  Report Type: Spontaneous
  Country: US (occurrence: US)
  Receive Date: 20200303
  Receipt Date: 20210414
  Transmission Date: 20210716
  Serious: Yes (Other)
  Sender: FDA-Public Use
  Company Number: US-ASTRAZENECA-2020SE29194

PATIENT
  Sex: Female
  Weight: 69.9 kg

DRUGS (51)
  1. TUMS [Concomitant]
     Active Substance: CALCIUM CARBONATE
  2. RANITIDINE. [Concomitant]
     Active Substance: RANITIDINE
     Dates: start: 20130409, end: 20171116
  3. AZITHROMYCIN ANHYDROUS. [Concomitant]
     Active Substance: AZITHROMYCIN ANHYDROUS
  4. PRILOSEC [Suspect]
     Active Substance: OMEPRAZOLE MAGNESIUM
     Indication: GASTROOESOPHAGEAL REFLUX DISEASE
     Route: 048
     Dates: start: 200101, end: 200401
  5. PRILOSEC [Suspect]
     Active Substance: OMEPRAZOLE MAGNESIUM
     Indication: GASTROOESOPHAGEAL REFLUX DISEASE
     Route: 048
     Dates: start: 2001
  6. MOVANTIK [Concomitant]
     Active Substance: NALOXEGOL OXALATE
  7. DICLOFENAC [Concomitant]
     Active Substance: DICLOFENAC
  8. FLUOXETINE [Concomitant]
     Active Substance: FLUOXETINE HYDROCHLORIDE
     Indication: DEPRESSION
     Dates: start: 20130224, end: 20170710
  9. NIZATIDINE. [Concomitant]
     Active Substance: NIZATIDINE
  10. COMBIVENT [Concomitant]
     Active Substance: ALBUTEROL SULFATE\IPRATROPIUM BROMIDE
  11. HYDROXYCHLOROQUINE [Concomitant]
     Active Substance: HYDROXYCHLOROQUINE
  12. CELEBREX [Concomitant]
     Active Substance: CELECOXIB
  13. OXAPROZIN. [Concomitant]
     Active Substance: OXAPROZIN
  14. NEXIUM [Suspect]
     Active Substance: ESOMEPRAZOLE MAGNESIUM
     Indication: GASTROOESOPHAGEAL REFLUX DISEASE
     Route: 048
     Dates: start: 200101, end: 200401
  15. NEXIUM 24HR [Suspect]
     Active Substance: ESOMEPRAZOLE MAGNESIUM
     Indication: GASTROOESOPHAGEAL REFLUX DISEASE
     Route: 048
     Dates: start: 2014, end: 2016
  16. PREVACID [Suspect]
     Active Substance: LANSOPRAZOLE
     Indication: GASTROOESOPHAGEAL REFLUX DISEASE
     Route: 065
     Dates: start: 2001
  17. CIPROFLOXACIN. [Concomitant]
     Active Substance: CIPROFLOXACIN
     Indication: INFECTION
     Dates: start: 20140221, end: 20170919
  18. FOLIC ACID. [Concomitant]
     Active Substance: FOLIC ACID
  19. VENTOLIN [Concomitant]
     Active Substance: ALBUTEROL SULFATE
  20. NEXIUM [Suspect]
     Active Substance: ESOMEPRAZOLE MAGNESIUM
     Indication: GASTROOESOPHAGEAL REFLUX DISEASE
     Route: 048
     Dates: start: 2001, end: 2016
  21. PRILOSEC [Suspect]
     Active Substance: OMEPRAZOLE MAGNESIUM
     Indication: GASTROOESOPHAGEAL REFLUX DISEASE
     Route: 048
     Dates: start: 2001
  22. PREVACID [Suspect]
     Active Substance: LANSOPRAZOLE
     Indication: GASTROOESOPHAGEAL REFLUX DISEASE
     Route: 065
     Dates: start: 2001
  23. TRIMETHOPRIM. [Concomitant]
     Active Substance: TRIMETHOPRIM
  24. FLUDROCORTISONE [Concomitant]
     Active Substance: FLUDROCORTISONE
  25. NITROFURANTOIN. [Concomitant]
     Active Substance: NITROFURANTOIN
  26. GABAPENTIN. [Concomitant]
     Active Substance: GABAPENTIN
  27. TOLTERODINE [Concomitant]
     Active Substance: TOLTERODINE
  28. LEVOFLOXACIN. [Concomitant]
     Active Substance: LEVOFLOXACIN
     Indication: INFECTION
     Dates: start: 20130926, end: 20131026
  29. DOXYCYCLINE. [Concomitant]
     Active Substance: DOXYCYCLINE
     Indication: INFECTION
     Dates: start: 20140327, end: 20170412
  30. LYRICA [Concomitant]
     Active Substance: PREGABALIN
  31. LINZESS [Concomitant]
     Active Substance: LINACLOTIDE
  32. CYMBALTA [Concomitant]
     Active Substance: DULOXETINE HYDROCHLORIDE
  33. PREDNISONE. [Concomitant]
     Active Substance: PREDNISONE
  34. ADVAIR HFA [Concomitant]
     Active Substance: FLUTICASONE PROPIONATE\SALMETEROL XINAFOATE
  35. FLURAZEPAM [Concomitant]
     Active Substance: FLURAZEPAM HYDROCHLORIDE
  36. LEVETIRACETAM. [Concomitant]
     Active Substance: LEVETIRACETAM
  37. ZANAFLEX [Concomitant]
     Active Substance: TIZANIDINE HYDROCHLORIDE
  38. METHADONE [Concomitant]
     Active Substance: METHADONE HYDROCHLORIDE
  39. NEXIUM [Suspect]
     Active Substance: ESOMEPRAZOLE MAGNESIUM
     Indication: GASTROOESOPHAGEAL REFLUX DISEASE
     Route: 048
     Dates: start: 200101, end: 200401
  40. NEXIUM [Suspect]
     Active Substance: ESOMEPRAZOLE MAGNESIUM
     Indication: GASTROOESOPHAGEAL REFLUX DISEASE
     Route: 048
     Dates: start: 2001, end: 2016
  41. NEXIUM 24HR [Suspect]
     Active Substance: ESOMEPRAZOLE MAGNESIUM
     Indication: GASTROOESOPHAGEAL REFLUX DISEASE
     Route: 048
     Dates: start: 2014, end: 2016
  42. PRILOSEC [Suspect]
     Active Substance: OMEPRAZOLE MAGNESIUM
     Indication: GASTROOESOPHAGEAL REFLUX DISEASE
     Route: 048
     Dates: start: 200101, end: 200401
  43. PROTONIX [Suspect]
     Active Substance: PANTOPRAZOLE SODIUM
     Indication: GASTROOESOPHAGEAL REFLUX DISEASE
     Route: 065
     Dates: start: 2001
  44. PROTONIX [Suspect]
     Active Substance: PANTOPRAZOLE SODIUM
     Indication: GASTROOESOPHAGEAL REFLUX DISEASE
     Route: 065
     Dates: start: 2001
  45. PEPCID AC [Concomitant]
     Active Substance: FAMOTIDINE
     Dates: start: 2019
  46. DIPHENHYDRAMINE. [Concomitant]
     Active Substance: DIPHENHYDRAMINE
  47. HYDROCODON [Concomitant]
     Active Substance: HYDROCODONE
  48. ALPRAZOLAM. [Concomitant]
     Active Substance: ALPRAZOLAM
  49. OXCARBAZEPINE. [Concomitant]
     Active Substance: OXCARBAZEPINE
  50. BACLOFEN. [Concomitant]
     Active Substance: BACLOFEN
  51. ROPINIROLE. [Concomitant]
     Active Substance: ROPINIROLE

REACTIONS (2)
  - Gastrooesophageal reflux disease [Not Recovered/Not Resolved]
  - Chronic kidney disease [Not Recovered/Not Resolved]
